FAERS Safety Report 22154519 (Version 2)
Quarter: 2023Q2

REPORT INFORMATION
  Report Type: Spontaneous
  Country: CA (occurrence: CA)
  Receive Date: 20230330
  Receipt Date: 20230413
  Transmission Date: 20230722
  Serious: Yes (Other)
  Sender: FDA-Public Use
  Company Number: CA-002147023-PHHY2013CA127510

PATIENT
  Age: 54 Year
  Sex: Female

DRUGS (6)
  1. MITOTANE [Suspect]
     Active Substance: MITOTANE
     Indication: Product used for unknown indication
     Route: 048
  2. CLOZARIL [Suspect]
     Active Substance: CLOZAPINE
     Indication: Bipolar disorder
     Dosage: 1 TABLET PER DAY, AT BEDTIME
     Dates: start: 20130829
  3. CLOZARIL [Suspect]
     Active Substance: CLOZAPINE
     Indication: Bipolar disorder
     Dosage: AT BEDTIME
     Dates: start: 20130903
  4. LITHIUM [Concomitant]
     Active Substance: LITHIUM
     Indication: Product used for unknown indication
     Dosage: AT BEDTIME
  5. OXAZEPAM [Concomitant]
     Active Substance: OXAZEPAM
     Indication: Product used for unknown indication
     Dosage: 30 TO 60 MG, AT BEDTIME
  6. SERTRALINE [Concomitant]
     Active Substance: SERTRALINE HYDROCHLORIDE
     Indication: Product used for unknown indication
     Dosage: 50 MG BID

REACTIONS (4)
  - Rabbit syndrome [Unknown]
  - Dyskinesia [Unknown]
  - Major depression [Unknown]
  - Vomiting [Unknown]
